FAERS Safety Report 9286012 (Version 1)
Quarter: 2013Q2

REPORT INFORMATION
  Report Type: Spontaneous
  Country: US (occurrence: None)
  Receive Date: 20130507
  Receipt Date: 20130507
  Transmission Date: 20140414
  Serious: Yes (Hospitalization)
  Sender: FDA-Public Use
  Company Number: 2013AP005014

PATIENT
  Age: 48 Year
  Sex: Male

DRUGS (4)
  1. MYCOPHENOLATE MOFETIL [Suspect]
     Indication: TRANSPLANT REJECTION
     Dates: start: 2002
  2. TACROLIMUS [Suspect]
     Indication: TRANSPLANT REJECTION
  3. PREDNISONE [Suspect]
     Indication: TRANSPLANT REJECTION
  4. CICLOSPORIN [Concomitant]

REACTIONS (8)
  - Weight increased [None]
  - Cardiac failure acute [None]
  - Drug dose omission [None]
  - Transplant rejection [None]
  - Coronary artery disease [None]
  - Central nervous system lesion [None]
  - Progressive multifocal leukoencephalopathy [None]
  - JC virus test positive [None]
